FAERS Safety Report 9524403 (Version 1)
Quarter: 2013Q3

REPORT INFORMATION
  Report Type: Spontaneous
  Country: US (occurrence: None)
  Receive Date: 20130912
  Receipt Date: 20130912
  Transmission Date: 20140515
  Serious: No
  Sender: FDA-Public Use
  Company Number: None

PATIENT
  Age: 82 None
  Sex: Female

DRUGS (6)
  1. CANDESARTAN [Suspect]
     Indication: HYPERTENSION
     Route: 048
     Dates: start: 20130707, end: 20130725
  2. ATACAND [Concomitant]
  3. CARTIA [Concomitant]
  4. ZYRTEC [Concomitant]
  5. PRILOSEC [Concomitant]
  6. LEVOTHYROXINE [Concomitant]

REACTIONS (8)
  - Nausea [None]
  - Dysgeusia [None]
  - Tongue coated [None]
  - Tremor [None]
  - Palpitations [None]
  - Chest discomfort [None]
  - Dyspnoea [None]
  - Gastrooesophageal reflux disease [None]
